FAERS Safety Report 7625183-1 (Version None)
Quarter: 2011Q3

REPORT INFORMATION
  Report Type: 
  Country: None (occurrence: None)
  Receive Date: 20110721
  Receipt Date: 20090403
  Transmission Date: 20111222
  Serious: Yes (Other)
  Sender: FDA-Public Use
  Company Number: US-BAYER-200922742NA

PATIENT
  Age: 63 Year
  Sex: Male
  Weight: 132 kg

DRUGS (13)
  1. MELOXICAM [Concomitant]
     Dosage: 15 MG, QD
     Route: 048
     Dates: start: 20020201
  2. HEPARIN [Concomitant]
     Route: 042
  3. BENICAR [Concomitant]
     Dosage: 40 MG, QD
     Route: 048
     Dates: start: 20050601
  4. CELEBREX [Concomitant]
     Dosage: UNK
     Route: 048
     Dates: start: 20060101, end: 20070101
  5. LEVOTHYROXINE SODIUM [Concomitant]
     Dosage: 150 MCG/24HR, QD
     Route: 048
     Dates: start: 20010101
  6. ACETYLSALICYLIC ACID SRT [Concomitant]
     Dosage: 325 MG, QD
     Route: 048
     Dates: start: 20071101
  7. PROTAMINE SULFATE [Concomitant]
     Route: 042
  8. TRASYLOL [Suspect]
     Indication: PRODUCT USED FOR UNKNOWN INDICATION
     Dosage: 200ML LOADING DOSE
     Route: 042
     Dates: start: 20070822, end: 20070822
  9. ETOMIDATE [Concomitant]
     Route: 042
  10. TRASYLOL [Suspect]
     Dosage: 50ML PER HOUR INFUSION
     Route: 042
     Dates: start: 20070822, end: 20070822
  11. SODIUM BICARBONATE [Concomitant]
     Route: 042
  12. DARVOCET [Concomitant]
     Dosage: AS NEEDED
     Route: 048
  13. ZINACEF [Concomitant]
     Route: 042

REACTIONS (5)
  - INJURY [None]
  - RENAL FAILURE [None]
  - FEAR [None]
  - STRESS [None]
  - ANXIETY [None]
